FAERS Safety Report 4979201-X (Version None)
Quarter: 2006Q2

REPORT INFORMATION
  Report Type: 
  Country: None (occurrence: None)
  Receive Date: 20060421
  Receipt Date: 20060414
  Transmission Date: 20061013
  Serious: Yes (Life-Threatening, Hospitalization, Disabling)
  Sender: FDA-Public Use
  Company Number: JP-GLAXOSMITHKLINE-B0420614A

PATIENT
  Age: 11 Year
  Sex: Female
  Weight: 35 kg

DRUGS (25)
  1. ALKERAN [Suspect]
     Indication: STEM CELL TRANSPLANT
     Route: 042
     Dates: start: 20050828, end: 20050829
  2. ALKERAN [Suspect]
     Route: 042
     Dates: start: 20050904, end: 20050905
  3. THIOTEPA [Suspect]
     Dates: start: 20050828, end: 20050829
  4. THIOTEPA [Suspect]
     Dates: start: 20050904, end: 20050905
  5. GRAN [Concomitant]
     Dates: start: 20050909, end: 20050920
  6. SOLITA-T NO.3 [Concomitant]
     Route: 042
     Dates: start: 20050828, end: 20050830
  7. DIAMOX [Concomitant]
     Dates: start: 20050828, end: 20050829
  8. DIAMOX [Concomitant]
     Dates: start: 20050904, end: 20050906
  9. FUNGIZONE [Concomitant]
     Route: 048
     Dates: start: 20050828, end: 20050831
  10. BAKTAR [Concomitant]
     Route: 048
     Dates: start: 20050828, end: 20051029
  11. POLYMYXIN B SULFATE [Concomitant]
     Route: 048
     Dates: start: 20050828, end: 20050927
  12. DIFLUCAN [Concomitant]
     Route: 048
     Dates: start: 20050901, end: 20050927
  13. GASTER [Concomitant]
     Route: 048
     Dates: start: 20050828, end: 20050909
  14. MUCODYNE [Concomitant]
     Route: 048
     Dates: start: 20050828, end: 20050909
  15. MUCOSOLVAN [Concomitant]
     Route: 048
     Dates: start: 20050828, end: 20050909
  16. KYTRIL [Concomitant]
     Route: 042
     Dates: start: 20050828, end: 20050829
  17. KYTRIL [Concomitant]
     Route: 042
     Dates: start: 20050904, end: 20050905
  18. MIYA BM [Concomitant]
     Route: 048
     Dates: start: 20050906, end: 20050922
  19. ADSORBIN [Concomitant]
     Route: 048
     Dates: start: 20050906, end: 20050922
  20. CARBENIN [Concomitant]
     Route: 042
     Dates: start: 20050908, end: 20050916
  21. AMIKACIN SULFATE [Concomitant]
     Dates: start: 20050911, end: 20050916
  22. MEROPEN [Concomitant]
     Route: 042
     Dates: start: 20050916, end: 20050920
  23. TARGOCID [Concomitant]
     Route: 042
     Dates: start: 20050916, end: 20050926
  24. DUROTEP [Concomitant]
     Route: 062
     Dates: start: 20050911, end: 20050914
  25. ZOVIRAX [Concomitant]
     Route: 048
     Dates: start: 20051001, end: 20051012

REACTIONS (4)
  - HERPES SIMPLEX [None]
  - SEPSIS [None]
  - STOMATITIS [None]
  - STREPTOCOCCAL INFECTION [None]
